FAERS Safety Report 19985941 (Version 1)
Quarter: 2021Q4

REPORT INFORMATION
  Report Type: Spontaneous
  Country: US (occurrence: US)
  Receive Date: 20211022
  Receipt Date: 20211022
  Transmission Date: 20220303
  Serious: Yes (Other)
  Sender: FDA-Public Use
  Company Number: US-BAYER-2021A232184

PATIENT
  Age: 31 Year
  Sex: Female

DRUGS (3)
  1. ASPIRIN [Suspect]
     Active Substance: ASPIRIN
     Indication: Colitis
  2. HYDROXYCHLOROQUINE [Concomitant]
     Active Substance: HYDROXYCHLOROQUINE
  3. INFLIXIMAB [Concomitant]
     Active Substance: INFLIXIMAB

REACTIONS (6)
  - Metastatic cutaneous Crohn^s disease [None]
  - Haematochezia [None]
  - Skin ulcer [None]
  - Anal fistula [None]
  - Proctitis [None]
  - Off label use [None]
